FAERS Safety Report 4908598-1 (Version None)
Quarter: 2006Q1

REPORT INFORMATION
  Report Type: 
  Country: None (occurrence: None)
  Receive Date: 20060210
  Receipt Date: 20050913
  Transmission Date: 20060701
  Serious: No
  Sender: FDA-Public Use
  Company Number: US-GLAXOSMITHKLINE-A0574057A

PATIENT
  Age: 39 Year
  Sex: Female

DRUGS (3)
  1. PAXIL CR [Suspect]
     Indication: PANIC DISORDER
     Dosage: 12.5MG THREE TIMES PER WEEK
     Route: 048
  2. XANAX [Concomitant]
     Route: 065
  3. RESTORIL [Concomitant]
     Route: 065

REACTIONS (8)
  - CONSTIPATION [None]
  - DIZZINESS [None]
  - DRUG ADMINISTRATION ERROR [None]
  - HEADACHE [None]
  - INCREASED TENDENCY TO BRUISE [None]
  - INSOMNIA [None]
  - PARAESTHESIA [None]
  - SENSORY DISTURBANCE [None]
